FAERS Safety Report 9135232 (Version 1)
Quarter: 2013Q1

REPORT INFORMATION
  Report Type: Spontaneous
  Country: US (occurrence: US)
  Receive Date: 20130304
  Receipt Date: 20130304
  Transmission Date: 20140127
  Serious: Yes (Other)
  Sender: FDA-Public Use
  Company Number: US-ENDO PHARMACEUTICALS INC.-ENDC20110135

PATIENT
  Age: 36 Year
  Sex: Male
  Weight: 117.59 kg

DRUGS (1)
  1. ENDOCET [Suspect]
     Indication: PAIN
     Dosage: 60/1950 MG
     Route: 048

REACTIONS (4)
  - Somnolence [Recovering/Resolving]
  - Overdose [Recovering/Resolving]
  - Unresponsive to stimuli [Recovering/Resolving]
  - Cardiac arrest [Recovering/Resolving]
